FAERS Safety Report 6956377-6 (Version None)
Quarter: 2010Q3

REPORT INFORMATION
  Report Type: 
  Country: None (occurrence: None)
  Receive Date: 20100830
  Receipt Date: 20100818
  Transmission Date: 20110219
  Serious: Yes (Death, Life-Threatening, Hospitalization, Other)
  Sender: FDA-Public Use
  Company Number: A0877975A

PATIENT
  Age: 52 Year
  Sex: Female

DRUGS (8)
  1. ARIXTRA [Suspect]
     Route: 058
     Dates: start: 20070105, end: 20070109
  2. LOVENOX [Suspect]
     Dates: start: 20070109
  3. MULTI-VITAMIN [Concomitant]
  4. ASCORBIC ACID [Concomitant]
  5. OSCAL-D [Concomitant]
  6. HYDROCHLOROTHIAZIDE [Concomitant]
  7. KDUR [Concomitant]
  8. MAALOX [Concomitant]

REACTIONS (6)
  - CATHETER PLACEMENT [None]
  - COMA [None]
  - DEATH [None]
  - PLATELET COUNT DECREASED [None]
  - PNEUMOTHORAX [None]
  - RESPIRATORY ARREST [None]
